FAERS Safety Report 5369357-1 (Version None)
Quarter: 2007Q2

REPORT INFORMATION
  Report Type: 
  Country: None (occurrence: None)
  Receive Date: 20070625
  Receipt Date: 20070502
  Transmission Date: 20071010
  Serious: No
  Sender: FDA-Public Use
  Company Number: US-ASTRAZENECA-2007UW06436

PATIENT
  Age: 63 Year
  Sex: Female
  Weight: 59 kg

DRUGS (8)
  1. CRESTOR [Suspect]
     Indication: BLOOD CHOLESTEROL INCREASED
     Route: 048
     Dates: start: 20061124, end: 20070301
  2. LIPITOR [Suspect]
     Route: 048
  3. DIGITEC [Concomitant]
  4. POTASSIUM ACETATE [Concomitant]
  5. VITAMIN B-12 [Concomitant]
  6. VITAMIN B6 [Concomitant]
  7. DILTIAZEM [Concomitant]
  8. AVANDIA [Concomitant]

REACTIONS (4)
  - ARTHROPATHY [None]
  - ASTHENIA [None]
  - ATROPHY [None]
  - PAIN [None]
